FAERS Safety Report 24210715 (Version 1)
Quarter: 2024Q3

REPORT INFORMATION
  Report Type: Spontaneous
  Country: CN (occurrence: CN)
  Receive Date: 20240814
  Receipt Date: 20240814
  Transmission Date: 20241017
  Serious: Yes (Other)
  Sender: BAXTER
  Company Number: None

PATIENT
  Age: 40 Year
  Sex: Female
  Weight: 50 kg

DRUGS (10)
  1. CYCLOPHOSPHAMIDE [Suspect]
     Active Substance: CYCLOPHOSPHAMIDE
     Indication: Triple negative breast cancer
     Dosage: 0.9 G, ONE TIME IN ONE DAY, DILUTED WITH 100 ML OF 0.9% SODIUM CHLORIDE
     Route: 041
     Dates: start: 20240731, end: 20240801
  2. CYCLOPHOSPHAMIDE [Suspect]
     Active Substance: CYCLOPHOSPHAMIDE
     Indication: Breast cancer stage III
  3. CYCLOPHOSPHAMIDE [Suspect]
     Active Substance: CYCLOPHOSPHAMIDE
     Indication: Breast cancer female
  4. CYCLOPHOSPHAMIDE [Suspect]
     Active Substance: CYCLOPHOSPHAMIDE
     Indication: Chemotherapy
  5. SODIUM CHLORIDE [Suspect]
     Active Substance: SODIUM CHLORIDE
     Indication: Medication dilution
     Dosage: (0.9%) 100 ML, ONE TIME IN ONE DAY, DOSAGE FORM: INJECTION, USED TO DILUTE CYCLOPHOSPHAMIDE 0.9 G
     Route: 041
     Dates: start: 20240731, end: 20240801
  6. SODIUM CHLORIDE [Suspect]
     Active Substance: SODIUM CHLORIDE
     Dosage: (0.9%) 250 ML, ONE TIME IN ONE DAY, DOSAGE FORM: INJECTION, USED TO DILUTE EPIRUBICIN 130 MG
     Route: 041
     Dates: start: 20240731, end: 20240801
  7. EPIRUBICIN HYDROCHLORIDE [Suspect]
     Active Substance: EPIRUBICIN HYDROCHLORIDE
     Indication: Breast cancer female
     Dosage: 130 MG, ONE TIME IN ONE DAY, DILUTED WITH 250 ML OF 0.9% SODIUM CHLORIDE
     Route: 041
     Dates: start: 20240731, end: 20240801
  8. EPIRUBICIN HYDROCHLORIDE [Suspect]
     Active Substance: EPIRUBICIN HYDROCHLORIDE
     Indication: Triple negative breast cancer
  9. EPIRUBICIN HYDROCHLORIDE [Suspect]
     Active Substance: EPIRUBICIN HYDROCHLORIDE
     Indication: Breast cancer stage III
  10. EPIRUBICIN HYDROCHLORIDE [Suspect]
     Active Substance: EPIRUBICIN HYDROCHLORIDE
     Indication: Chemotherapy

REACTIONS (2)
  - Gastrointestinal disorder [Recovering/Resolving]
  - Nausea [Recovering/Resolving]

NARRATIVE: CASE EVENT DATE: 20240801
